FAERS Safety Report 7468460-X (Version None)
Quarter: 2011Q2

REPORT INFORMATION
  Report Type: 
  Country: None (occurrence: None)
  Receive Date: 20110509
  Receipt Date: 20110504
  Transmission Date: 20111010
  Serious: Yes (Hospitalization)
  Sender: FDA-Public Use
  Company Number: DE-PFIZER INC-2011073709

PATIENT
  Age: 89 Year
  Sex: Female
  Weight: 50 kg

DRUGS (11)
  1. BISOPROLOL FUMARATE [Suspect]
     Indication: HYPERTENSION
     Dosage: 2.5 MG, 2X/DAY
     Route: 048
  2. MOXONIDINE [Suspect]
     Indication: HYPERTENSION
     Dosage: 0.3 MG, 1X/DAY
  3. ACETYLSALICYLIC ACID [Concomitant]
     Indication: ISCHAEMIC HEART DISEASE PROPHYLAXIS
     Dosage: 100 MG, 1X/DAY
     Route: 048
  4. MIRTAZAPINE [Concomitant]
     Indication: DEPRESSION
     Dosage: 15 MG HALF A TABLET ONCE DAILY
  5. MICTONORM [Suspect]
     Indication: INCONTINENCE
     Dosage: 15 MG, 2X/DAY
     Route: 048
  6. ANLODIPIN [Concomitant]
     Indication: HYPERTENSION
     Dosage: 10 MG, 1X/DAY
     Route: 048
  7. DEKRISTOL [Concomitant]
     Indication: OSTEOPOROSIS
     Dosage: 200000 IU, EVERY TWO WEEKS
     Route: 048
  8. QUINAPRIL HCL [Suspect]
     Indication: HYPERTENSION
     Dosage: 10 MG, 2X/DAY
     Route: 048
  9. OXYCODONE HCL [Suspect]
     Indication: PAIN
     Dosage: 20 MG, 2X/DAY
     Route: 048
     Dates: start: 19990101, end: 20110120
  10. METAMIZOLE [Concomitant]
     Indication: PAIN
     Dosage: 750 MG, 3X/DAY
     Route: 048
  11. MACROGOL [Concomitant]
     Indication: CONSTIPATION
     Dosage: 13.125 G, 1X/DAY

REACTIONS (1)
  - SUBILEUS [None]
